FAERS Safety Report 5034835-1 (Version None)
Quarter: 2006Q2

REPORT INFORMATION
  Report Type: 
  Country: None (occurrence: None)
  Receive Date: 20060519
  Receipt Date: 20060329
  Transmission Date: 20061013
  Serious: No
  Sender: FDA-Public Use
  Company Number: TPA2006A00581

PATIENT
  Age: 83 Year
  Sex: Male
  Weight: 84.8226 kg

DRUGS (3)
  1. ROZEREM [Suspect]
     Indication: INSOMNIA
     Dosage: 8 MG, QHS, PER ORAL
     Route: 048
     Dates: start: 20060301, end: 20060329
  2. UNKNOWN HORMONE INJECTIONS(ALL OTHER THERAPEUTIC PRODUCTS) [Concomitant]
  3. AREDS VITAMIN(VITAMINS NOS, MINERALS NOS) [Concomitant]

REACTIONS (2)
  - DISCOMFORT [None]
  - INSOMNIA [None]
